FAERS Safety Report 4282332-3 (Version None)
Quarter: 2004Q1

REPORT INFORMATION
  Report Type: 
  Country: None (occurrence: None)
  Receive Date: 20040112
  Receipt Date: 20031022
  Transmission Date: 20041129
  Serious: Yes (Disabling)
  Sender: FDA-Public Use
  Company Number: 349807

PATIENT
  Age: 45 Year
  Sex: Female
  Weight: 47.6 kg

DRUGS (1)
  1. FUZEON [Suspect]
     Indication: ACQUIRED IMMUNODEFICIENCY SYNDROME
     Dosage: SUBCUTANEOUS
     Route: 058
     Dates: start: 20030916, end: 20030923

REACTIONS (4)
  - ADVERSE EVENT [None]
  - HYPERSENSITIVITY [None]
  - PYREXIA [None]
  - RASH [None]
